FAERS Safety Report 7215449-1 (Version None)
Quarter: 2011Q1

REPORT INFORMATION
  Report Type: 
  Country: None (occurrence: None)
  Receive Date: 20110107
  Receipt Date: 20110106
  Transmission Date: 20110831
  Serious: Yes (Other)
  Sender: FDA-Public Use
  Company Number: CA-ROCHE-748866

PATIENT
  Sex: Male

DRUGS (4)
  1. DECADRON [Concomitant]
  2. ZANTAC [Concomitant]
  3. BEVACIZUMAB [Suspect]
     Indication: GLIOBLASTOMA
     Dosage: INFUSION CANCELLED
     Route: 042
     Dates: start: 20100902, end: 20110106
  4. DILANTIN [Concomitant]

REACTIONS (6)
  - NASOPHARYNGITIS [None]
  - OEDEMA [None]
  - EYE INFECTION [None]
  - PYREXIA [None]
  - AMNESIA [None]
  - MUSCULOSKELETAL CHEST PAIN [None]
